FAERS Safety Report 7220892-0 (Version None)
Quarter: 2011Q1

REPORT INFORMATION
  Report Type: 
  Country: None (occurrence: None)
  Receive Date: 20110112
  Receipt Date: 20101105
  Transmission Date: 20110831
  Serious: No
  Sender: FDA-Public Use
  Company Number: A0883583A

PATIENT
  Age: 83 Year
  Sex: Male

DRUGS (1)
  1. JALYN [Suspect]
     Route: 065
     Dates: start: 20101001, end: 20101005

REACTIONS (1)
  - DIZZINESS POSTURAL [None]
